FAERS Safety Report 8242925-5 (Version None)
Quarter: 2012Q1

REPORT INFORMATION
  Report Type: 
  Country: None (occurrence: None)
  Receive Date: 20120329
  Receipt Date: 20120329
  Transmission Date: 20120608
  Serious: Yes (Hospitalization)
  Sender: FDA-Public Use
  Company Number: None

PATIENT
  Sex: Female
  Weight: 66.678 kg

DRUGS (3)
  1. DOCETAXEL [Suspect]
     Dosage: 75 MG/M2
     Route: 042
  2. OXALIPLATIN [Concomitant]
     Dosage: 40 MG/M2
     Route: 033
  3. DOCETAXEL [Concomitant]

REACTIONS (5)
  - STAPHYLOCOCCUS TEST POSITIVE [None]
  - HYPOXIA [None]
  - NO THERAPEUTIC RESPONSE [None]
  - PLEURAL EFFUSION [None]
  - LUNG INFILTRATION [None]
